FAERS Safety Report 8512169-8 (Version None)
Quarter: 2012Q3

REPORT INFORMATION
  Report Type: 
  Country: None (occurrence: None)
  Receive Date: 20120716
  Receipt Date: 20101207
  Transmission Date: 20120928
  Serious: Yes (Other)
  Sender: FDA-Public Use
  Company Number: US-ROCHE-751522

PATIENT
  Age: 79 Year
  Sex: Male

DRUGS (4)
  1. RANIBIZUMAB [Suspect]
     Indication: RETINAL VEIN OCCLUSION
     Dosage: 0.5 MG, UNK
     Route: 050
  2. RANIBIZUMAB [Suspect]
     Route: 065
  3. BEVACIZUMAB [Suspect]
     Indication: RETINAL VEIN OCCLUSION
     Route: 050
  4. BEVACIZUMAB [Suspect]
     Route: 065

REACTIONS (4)
  - OCULAR DISCOMFORT [None]
  - CONJUNCTIVAL HAEMORRHAGE [None]
  - EYE IRRITATION [None]
  - VITREOUS FLOATERS [None]
